FAERS Safety Report 8968305 (Version 1)
Quarter: 2012Q4

REPORT INFORMATION
  Report Type: 
  Country: JP (occurrence: JP)
  Receive Date: 20121217
  Receipt Date: 20121217
  Transmission Date: 20130627
  Serious: Yes (Death, Other)
  Sender: FDA-Public Use
  Company Number: JP-PFIZER INC-2012305659

PATIENT
  Age: 56 Year
  Sex: Male

DRUGS (6)
  1. METHYLPREDNISOLONE [Suspect]
     Dosage: 1 g/day (given twice for 3 days)
     Dates: start: 201103
  2. PREDNISOLONE [Suspect]
     Dosage: 30 mg, 1x/day
     Route: 048
     Dates: start: 2011, end: 2011
  3. PREDNISOLONE [Suspect]
     Dosage: 25 mg/day
     Route: 048
     Dates: start: 2011, end: 20110505
  4. PREDNISOLONE [Suspect]
     Dosage: 30 mg, UNK
     Route: 048
     Dates: start: 20110506
  5. CYCLOSPORINE A [Suspect]
     Dosage: 100 mg, 1x/day
     Route: 048
     Dates: start: 2011, end: 20110505
  6. CYCLOSPORINE A [Suspect]
     Dosage: 150 mg, UNK
     Route: 048
     Dates: start: 20110506

REACTIONS (1)
  - Hepatitis B [Fatal]
